FAERS Safety Report 9003957 (Version 5)
Quarter: 2013Q2

REPORT INFORMATION
  Report Type: Spontaneous
  Country: US (occurrence: US)
  Receive Date: 20130109
  Receipt Date: 20130503
  Transmission Date: 20140414
  Serious: Yes (Other)
  Sender: FDA-Public Use
  Company Number: US-AMGEN-USASP2013000648

PATIENT
  Age: 49 Year
  Sex: Female
  Weight: 63.49 kg

DRUGS (14)
  1. ENBREL [Suspect]
     Indication: RHEUMATOID ARTHRITIS
     Dosage: 50 MG, WEEKLY
     Route: 058
     Dates: start: 20121130, end: 20130103
  2. NOVOLOG [Concomitant]
     Dosage: UNK
     Route: 058
  3. LISINOPRIL [Concomitant]
     Dosage: 20 MG, QD
     Route: 048
  4. ONE TOUCH [Concomitant]
     Dosage: UNK
  5. VITAMIN D /00107901/ [Concomitant]
     Dosage: 2000 UNIT, QD
     Route: 048
  6. SIMVASTATIN [Concomitant]
     Dosage: 20 MG, QD
     Route: 048
  7. FOLIC ACID [Concomitant]
     Dosage: 1 MG, QD
     Route: 048
  8. CELEBREX [Concomitant]
     Dosage: 200 MG, QD
     Route: 048
  9. NEXIUM                             /01479302/ [Concomitant]
     Dosage: 40 MG, QD
     Route: 048
  10. WELLBUTRIN [Concomitant]
     Dosage: 100 MG, 3 TABLETS 3 TIMES DAILY
     Route: 048
  11. INSULIN [Concomitant]
     Dosage: UNK
  12. METHOTREXATE [Concomitant]
     Dosage: UNK
     Dates: start: 201204, end: 20130103
  13. ANTIBIOTICS [Concomitant]
     Dosage: UNK
  14. DIFLUCAN [Concomitant]
     Dosage: UNK

REACTIONS (10)
  - Coccidioidomycosis [Not Recovered/Not Resolved]
  - Pneumonitis [Unknown]
  - Arthritis [Unknown]
  - Arthralgia [Not Recovered/Not Resolved]
  - Local swelling [Unknown]
  - Musculoskeletal stiffness [Unknown]
  - Pulmonary mass [Unknown]
  - Pulmonary cavitation [Unknown]
  - Chest pain [Not Recovered/Not Resolved]
  - Respiratory tract infection [Unknown]
